FAERS Safety Report 10215648 (Version 6)
Quarter: 2014Q4

REPORT INFORMATION
  Report Type: Report from Study
  Country: DE (occurrence: DE)
  Receive Date: 20140604
  Receipt Date: 20141017
  Transmission Date: 20150528
  Serious: Yes (Hospitalization)
  Sender: FDA-Public Use
  Company Number: DE-PFIZER INC-2014142988

PATIENT
  Age: 30 Year
  Sex: Female
  Weight: 54 kg

DRUGS (8)
  1. SYMBICORT [Concomitant]
     Active Substance: BUDESONIDE\FORMOTEROL FUMARATE DIHYDRATE
     Indication: ASTHMA
     Dosage: 160/6 UG, 1 PUFF AS NEEDED
     Dates: start: 201212
  2. TRIAMCINOLONE ACETONIDE. [Concomitant]
     Active Substance: TRIAMCINOLONE ACETONIDE
     Indication: NEURODERMATITIS
     Dosage: 0.1 %, AS NEEDED, LOCAL
     Dates: start: 20131216, end: 20140108
  3. APSOMOL [Concomitant]
     Active Substance: ALBUTEROL
     Indication: ASTHMA
     Dosage: 100 UG, AS NEEDED, 1PUFF
     Dates: start: 201212
  4. PANTOPRAZOLE [Concomitant]
     Active Substance: PANTOPRAZOLE SODIUM
     Indication: PROPHYLAXIS
     Dosage: 40 MG, 1X/DAY
     Route: 048
     Dates: start: 20140206
  5. PREDNISOLONE. [Suspect]
     Active Substance: PREDNISOLONE
     Indication: CROHN^S DISEASE
     Dosage: 10 MG, 1X/DAY
     Route: 048
     Dates: start: 20140320, end: 20140522
  6. TOFACITINIB CITRATE [Suspect]
     Active Substance: TOFACITINIB CITRATE
     Indication: CROHN^S DISEASE
     Dosage: 10 MG, 2X/DAY
     Route: 048
     Dates: start: 20140331, end: 20140522
  7. VELAFEE [Concomitant]
     Indication: CONTRACEPTION
     Dosage: 0.03/2 MG, ONCE DAILY
     Route: 048
     Dates: start: 2010
  8. PASTA ZINCI MOLLIS [Concomitant]
     Indication: PROCTALGIA
     Dosage: 100 MG, 1X/DAY, LOCAL
     Dates: start: 20140213

REACTIONS (2)
  - Vulval abscess [Recovered/Resolved]
  - Anovulvar fistula [Not Recovered/Not Resolved]

NARRATIVE: CASE EVENT DATE: 20140522
